FAERS Safety Report 19116971 (Version 2)
Quarter: 2021Q2

REPORT INFORMATION
  Report Type: Spontaneous
  Country: US (occurrence: US)
  Receive Date: 20210409
  Receipt Date: 20210512
  Transmission Date: 20210717
  Serious: No
  Sender: FDA-Public Use
  Company Number: US-ASTRAZENECA-2021A263140

PATIENT
  Sex: Male
  Weight: 98.9 kg

DRUGS (1)
  1. SYMBICORT [Suspect]
     Active Substance: BUDESONIDE\FORMOTEROL FUMARATE DIHYDRATE
     Indication: DYSPNOEA
     Dosage: 80/4.5 MCG TWO INHALATIONS TWO TIMES A DAY
     Route: 055

REACTIONS (4)
  - Cough [Unknown]
  - Product use issue [Unknown]
  - Wrong technique in device usage process [Unknown]
  - Product contamination physical [Unknown]
